FAERS Safety Report 10238614 (Version 1)
Quarter: 2014Q2

REPORT INFORMATION
  Report Type: Spontaneous
  Country: US (occurrence: US)
  Receive Date: 20140616
  Receipt Date: 20140616
  Transmission Date: 20141212
  Serious: No
  Sender: FDA-Public Use
  Company Number: US-B.I. PHARMACEUTICALS,INC./RIDGEFIELD-2014-BI-25298BP

PATIENT
  Age: 88 Year
  Sex: Male
  Weight: 86 kg

DRUGS (9)
  1. PRADAXA [Suspect]
     Indication: ATRIAL FLUTTER
     Dosage: 300 MG
     Route: 048
     Dates: start: 20140602
  2. PRAVASTATIN [Concomitant]
     Dosage: 40 MG
     Route: 048
  3. METOPROLOL [Concomitant]
     Indication: HYPERTENSION
     Dosage: 100 MG
     Route: 048
  4. METFORMIN [Concomitant]
     Indication: TYPE 2 DIABETES MELLITUS
     Dosage: 2000 MG
     Route: 048
  5. LEVOTHROXINE [Concomitant]
     Dosage: 25 MCG
     Route: 048
  6. LISINOPRIL [Concomitant]
     Indication: HYPERTENSION
     Dosage: 40 MG
     Route: 048
  7. VIT D [Concomitant]
     Dosage: 5000 U
     Route: 048
  8. FISH OIL/OMEGA 3 [Concomitant]
     Dosage: STRENGTH: 1000 MG/300 MG; DAILY DOSE: 2000 MG/600 MG
     Route: 048
  9. B COMPLEX WITH B12 [Concomitant]
     Dosage: 1 ANZ
     Route: 048

REACTIONS (5)
  - Chest pain [Not Recovered/Not Resolved]
  - Dyspepsia [Not Recovered/Not Resolved]
  - Dizziness [Not Recovered/Not Resolved]
  - Poor quality sleep [Recovered/Resolved]
  - Off label use [Not Recovered/Not Resolved]
